FAERS Safety Report 6408383-8 (Version None)
Quarter: 2009Q4

REPORT INFORMATION
  Report Type: 
  Country: None (occurrence: None)
  Receive Date: 20091021
  Receipt Date: 20091013
  Transmission Date: 20100525
  Serious: Yes (Hospitalization)
  Sender: FDA-Public Use
  Company Number: FR-ASTRAZENECA-2009SE19991

PATIENT
  Age: 81 Year
  Sex: Female

DRUGS (5)
  1. TENORMIN [Suspect]
     Route: 048
     Dates: start: 20090512, end: 20090523
  2. FLECAINIDE ACETATE [Suspect]
     Route: 048
     Dates: start: 20090512, end: 20090523
  3. ALDACTONE [Concomitant]
     Route: 048
  4. LEVOTHYROXINE SODIUM [Concomitant]
     Route: 048
  5. KARDEGIC [Concomitant]
     Route: 048

REACTIONS (2)
  - BRADYCARDIA [None]
  - MALAISE [None]
